FAERS Safety Report 5573097-3 (Version None)
Quarter: 2007Q4

REPORT INFORMATION
  Report Type: 
  Country: None (occurrence: None)
  Receive Date: 20071220
  Receipt Date: 20071203
  Transmission Date: 20080405
  Serious: Yes (Death)
  Sender: FDA-Public Use
  Company Number: 002#8#2007-00380

PATIENT
  Age: 77 Year
  Sex: Female

DRUGS (4)
  1. FAMOTIDINE [Suspect]
     Indication: CLOSTRIDIAL INFECTION
  2. AMINOGLYCOSIDES [Suspect]
     Indication: CHOLECYSTITIS
  3. VANCOMYCIN [Concomitant]
  4. METRONIDAZOLE [Concomitant]

REACTIONS (1)
  - CLOSTRIDIUM DIFFICILE COLITIS [None]
